FAERS Safety Report 21807040 (Version 1)
Quarter: 2023Q1

REPORT INFORMATION
  Report Type: Spontaneous
  Country: None (occurrence: NL)
  Receive Date: 20230102
  Receipt Date: 20230102
  Transmission Date: 20230418
  Serious: Yes (Other)
  Sender: FDA-Public Use
  Company Number: NL-Ascend Therapeutics US, LLC-2136343

PATIENT
  Sex: Female
  Weight: 62 kg

DRUGS (5)
  1. ESTROGEL [Suspect]
     Active Substance: ESTRADIOL
     Indication: Menopausal disorder
     Route: 065
     Dates: start: 20221021, end: 20221114
  2. ESTROGEL [Suspect]
     Active Substance: ESTRADIOL
  3. ESTRADIOL [Suspect]
     Active Substance: ESTRADIOL
     Route: 065
     Dates: start: 20221021, end: 20221114
  4. CLOBETASOL CREME(CLOBETASOL) [Concomitant]
     Route: 065
  5. FLUCONAZOL CAPSULE(FLUCONAZOLE) [Concomitant]
     Route: 065

REACTIONS (3)
  - Angioedema [Recovered/Resolved]
  - Eye swelling [Recovered/Resolved]
  - Paraesthesia oral [Recovered/Resolved]
